FAERS Safety Report 10222191 (Version 1)
Quarter: 2014Q2

REPORT INFORMATION
  Report Type: Spontaneous
  Country: US (occurrence: US)
  Receive Date: 20140606
  Receipt Date: 20140606
  Transmission Date: 20141212
  Serious: No
  Sender: FDA-Public Use
  Company Number: US-BAXTER-2014BAX026447

PATIENT
  Sex: 0

DRUGS (2)
  1. OSMITROL INJECTION (MANNITOL INJECTION, USP) [Suspect]
     Indication: CATHETER MANAGEMENT
     Route: 042
  2. OSMITROL INJECTION (MANNITOL INJECTION, USP) [Suspect]
     Indication: INJURY

REACTIONS (2)
  - Hypotension [Unknown]
  - Wrong drug administered [Recovered/Resolved]
